FAERS Safety Report 4845234-7 (Version None)
Quarter: 2005Q4

REPORT INFORMATION
  Report Type: 
  Country: None (occurrence: None)
  Receive Date: 20051125
  Receipt Date: 20051110
  Transmission Date: 20060501
  Serious: Yes (Hospitalization)
  Sender: FDA-Public Use
  Company Number: US-2005-016968

PATIENT
  Age: 55 Year
  Sex: Female
  Weight: 88.4 kg

DRUGS (21)
  1. BETAFERON (BETAFERN (SH Y 579E))(INTERFERON BETA-1B) INJECTION 250 UG [Suspect]
     Indication: RELAPSING-REMITTING MULTIPLE SCLEROSIS
     Dosage: 8 MIU EVERY 2 D SUBCUTANEOUS
     Route: 058
     Dates: start: 20050202, end: 20050101
  2. AVONEX [Concomitant]
  3. LEXAPRO [Concomitant]
  4. AMLODIPINE [Concomitant]
  5. GABAPENTIN [Concomitant]
  6. ATORVASTATIN CALCIUM [Concomitant]
  7. HYDROCHLOROTHIAZIDE [Concomitant]
  8. ALPRAZOLAM [Concomitant]
  9. HYDROCODONE BITARTRATE [Concomitant]
  10. BUPROPION HCL [Concomitant]
  11. FAMOTIDINE [Concomitant]
  12. OXYCONTIN [Concomitant]
  13. ELAVIL [Concomitant]
  14. HYDROCORTISONE [Concomitant]
  15. BACLOFEN [Concomitant]
  16. COLACE (DOCUSATE SODIUM) [Concomitant]
  17. PROTONIX [Concomitant]
  18. SOLU-MEDROL [Concomitant]
  19. PERCOCET [Concomitant]
  20. PREDNISONE [Concomitant]
  21. METHYLPREDNISOLONE [Concomitant]

REACTIONS (5)
  - ASTHENIA [None]
  - DELUSION [None]
  - MANIA [None]
  - MULTIPLE SCLEROSIS RELAPSE [None]
  - NERVOUSNESS [None]
